FAERS Safety Report 10173488 (Version 1)
Quarter: 2014Q2

REPORT INFORMATION
  Report Type: Spontaneous
  Country: US (occurrence: US)
  Receive Date: 20140515
  Receipt Date: 20140515
  Transmission Date: 20141212
  Serious: No
  Sender: FDA-Public Use
  Company Number: US-TEVA-481511USA

PATIENT
  Age: 74 Year
  Sex: Female
  Weight: 54.48 kg

DRUGS (6)
  1. PROAIR HFA [Suspect]
     Indication: BRONCHITIS
     Route: 055
     Dates: start: 20140506
  2. AMOXICILLIN [Concomitant]
     Indication: BRONCHITIS
  3. AMOXICILLIN [Concomitant]
     Indication: SINUSITIS
  4. DYMISTA [Concomitant]
     Indication: NASAL CONGESTION
  5. DYMISTA [Concomitant]
     Indication: ANTIALLERGIC THERAPY
  6. ALLEGRA [Concomitant]
     Indication: HYPERSENSITIVITY

REACTIONS (4)
  - Fatigue [Not Recovered/Not Resolved]
  - Somnolence [Not Recovered/Not Resolved]
  - Headache [Recovered/Resolved]
  - Oropharyngeal pain [Recovered/Resolved]
